FAERS Safety Report 4699516-2 (Version None)
Quarter: 2005Q2

REPORT INFORMATION
  Report Type: 
  Country: None (occurrence: None)
  Receive Date: 20050624
  Receipt Date: 20050617
  Transmission Date: 20051028
  Serious: Yes (Other)
  Sender: FDA-Public Use
  Company Number: CA-JNJFOC-20050604482

PATIENT
  Age: 74 Year
  Sex: Male

DRUGS (1)
  1. HALDOL [Suspect]
     Indication: DELIRIUM
     Dosage: 1 TO 4 DAYS (4,9,8,5 MG DAILY RESPECTIVELY)  5 TO 7 DAYS (15,17,18 MG)  DAY 8 ADDITIONAL  11 MG
     Route: 042

REACTIONS (2)
  - ATRIAL FIBRILLATION [None]
  - ILEUS [None]
